FAERS Safety Report 6870136-4 (Version None)
Quarter: 2010Q3

REPORT INFORMATION
  Report Type: 
  Country: None (occurrence: None)
  Receive Date: 20100721
  Receipt Date: 20100715
  Transmission Date: 20110219
  Serious: Yes (Hospitalization)
  Sender: FDA-Public Use
  Company Number: 015530

PATIENT
  Sex: Female

DRUGS (7)
  1. KEPPRA [Suspect]
     Dosage: 250 MG BID ORAL
     Route: 048
     Dates: start: 20100618
  2. KALETRA [Concomitant]
  3. ABACAVIR SULFATE AND LAMIVUDINE [Concomitant]
  4. KETALGIN [Concomitant]
  5. FEMOSTON [Concomitant]
  6. CALCIMAGON-D3 [Concomitant]
  7. SERESTA [Concomitant]

REACTIONS (1)
  - BRADYCARDIA [None]
